FAERS Safety Report 12470889 (Version 1)
Quarter: 2016Q2

REPORT INFORMATION
  Report Type: Spontaneous
  Country: US (occurrence: None)
  Receive Date: 20160615
  Receipt Date: 20160615
  Transmission Date: 20160815
  Serious: No
  Sender: FDA-Public Use
  Company Number: None

PATIENT

DRUGS (3)
  1. OXYCODONE/APAP [Suspect]
     Active Substance: ACETAMINOPHEN\OXYCODONE HYDROCHLORIDE
  2. ENOXAPARIN [Suspect]
     Active Substance: ENOXAPARIN
  3. ASPIRIN. [Suspect]
     Active Substance: ASPIRIN

REACTIONS (4)
  - Intercepted medication error [None]
  - Wrong patient received medication [None]
  - Drug dispensing error [None]
  - Transcription medication error [None]
